FAERS Safety Report 6213706-9 (Version None)
Quarter: 2009Q2

REPORT INFORMATION
  Report Type: 
  Country: None (occurrence: None)
  Receive Date: 20090603
  Receipt Date: 20090528
  Transmission Date: 20091009
  Serious: Yes (Death, Hospitalization)
  Sender: FDA-Public Use
  Company Number: PHHY2008MX27062

PATIENT
  Sex: Male

DRUGS (2)
  1. DIOVAN [Suspect]
     Indication: HYPERTENSION
     Dosage: 80 MG
     Dates: start: 20080701
  2. DIOVAN [Suspect]
     Dosage: 0.5 (80 MG)/DAY
     Dates: start: 20081101

REACTIONS (4)
  - CEREBRAL HAEMORRHAGE [None]
  - HYPERTENSIVE CRISIS [None]
  - HYPOTENSION [None]
  - PROSTATIC OPERATION [None]
